FAERS Safety Report 16283575 (Version 1)
Quarter: 2019Q2

REPORT INFORMATION
  Report Type: Spontaneous
  Country: US (occurrence: US)
  Receive Date: 20190507
  Receipt Date: 20190507
  Transmission Date: 20190711
  Serious: No
  Sender: FDA-Public Use
  Company Number: US-SA-2019SA120501

PATIENT
  Age: 50 Year
  Sex: Female

DRUGS (1)
  1. ALLEGRA-D 24 HOUR [Suspect]
     Active Substance: FEXOFENADINE HYDROCHLORIDE\PSEUDOEPHEDRINE HYDROCHLORIDE
     Dosage: 180 MG, QD
     Route: 065
     Dates: start: 20190427, end: 20190429

REACTIONS (5)
  - Productive cough [Unknown]
  - Upper respiratory tract infection [Unknown]
  - Pneumonitis [Unknown]
  - Constipation [Unknown]
  - Dysuria [Unknown]

NARRATIVE: CASE EVENT DATE: 20190427
